FAERS Safety Report 6751847-8 (Version None)
Quarter: 2010Q2

REPORT INFORMATION
  Report Type: 
  Country: None (occurrence: None)
  Receive Date: 20100602
  Receipt Date: 20100523
  Transmission Date: 20101027
  Serious: Yes (Hospitalization, Other)
  Sender: FDA-Public Use
  Company Number: CH-JNJFOC-20100509641

PATIENT
  Age: 52 Year
  Sex: Female

DRUGS (2)
  1. CAELYX [Suspect]
     Indication: OVARIAN CANCER
     Route: 065
  2. CARBOPLATIN [Concomitant]
     Indication: OVARIAN CANCER
     Route: 065
     Dates: start: 20100412, end: 20100510

REACTIONS (4)
  - GENERAL PHYSICAL HEALTH DETERIORATION [None]
  - NEUTROPENIA [None]
  - RELAPSING FEVER [None]
  - THROMBOCYTOPENIA [None]
